FAERS Safety Report 7767874-8 (Version None)
Quarter: 2011Q3

REPORT INFORMATION
  Report Type: 
  Country: None (occurrence: None)
  Receive Date: 20110922
  Receipt Date: 20101006
  Transmission Date: 20111222
  Serious: No
  Sender: FDA-Public Use
  Company Number: US-ASTRAZENECA-2010SE47157

PATIENT
  Age: 14941 Day
  Sex: Male
  Weight: 88.9 kg

DRUGS (2)
  1. SEROQUEL [Suspect]
     Indication: ANXIETY
     Route: 048
  2. SEROQUEL [Suspect]
     Indication: BIPOLAR DISORDER
     Route: 048

REACTIONS (4)
  - DRUG DOSE OMISSION [None]
  - HYPERHIDROSIS [None]
  - FEELING HOT [None]
  - INSOMNIA [None]
